FAERS Safety Report 8100268-4 (Version None)
Quarter: 2012Q1

REPORT INFORMATION
  Report Type: 
  Country: None (occurrence: None)
  Receive Date: 20120131
  Receipt Date: 20120120
  Transmission Date: 20120608
  Serious: Yes (Hospitalization)
  Sender: FDA-Public Use
  Company Number: US-BRISTOL-MYERS SQUIBB COMPANY-16349961

PATIENT
  Age: 73 Year
  Sex: Female

DRUGS (9)
  1. TENORMIN [Concomitant]
  2. VITAMIN D [Concomitant]
  3. LEVOTHYROXINE SODIUM [Concomitant]
  4. YERVOY [Suspect]
     Indication: METASTATIC MALIGNANT MELANOMA
     Dosage: ALSO TAKEN 4WK ONCE
     Dates: start: 20110601, end: 20110622
  5. CELEXA [Concomitant]
  6. CALCIUM [Concomitant]
  7. NEXIUM [Concomitant]
  8. ATIVAN [Concomitant]
  9. LIPITOR [Concomitant]

REACTIONS (6)
  - LOCAL SWELLING [None]
  - DEHYDRATION [None]
  - ERYTHEMA [None]
  - PRURITUS [None]
  - GASTROENTERITIS [None]
  - PYREXIA [None]
